FAERS Safety Report 15682561 (Version 1)
Quarter: 2020Q3

REPORT INFORMATION
  Report Type: Spontaneous
  Country: US (occurrence: US)
  Receive Date: 20181203
  Receipt Date: 20181203
  Transmission Date: 20201104
  Serious: Yes (Other)
  Sender: FDA-Public Use
  Company Number: US-MYLANLABS-2018M1088955

PATIENT
  Age: 9 Decade
  Sex: Male

DRUGS (7)
  1. EPINEPHRINE. [Suspect]
     Active Substance: EPINEPHRINE
     Indication: BLOOD PRESSURE DECREASED
     Dosage: WITH EPHEDRINE AND PHENYLEPHRINE
     Route: 065
  2. EPHEDRINE. [Suspect]
     Active Substance: EPHEDRINE
     Indication: HAEMODYNAMIC INSTABILITY
  3. EPHEDRINE. [Suspect]
     Active Substance: EPHEDRINE
     Indication: BLOOD PRESSURE DECREASED
     Route: 065
  4. PHENYLEPHRINE [Suspect]
     Active Substance: PHENYLEPHRINE HYDROCHLORIDE
     Indication: BLOOD PRESSURE DECREASED
     Route: 065
  5. PHENYLEPHRINE [Suspect]
     Active Substance: PHENYLEPHRINE HYDROCHLORIDE
     Indication: HAEMODYNAMIC INSTABILITY
  6. SEVOFLURANE. [Concomitant]
     Active Substance: SEVOFLURANE
     Indication: ANAESTHESIA
     Route: 065
  7. EPINEPHRINE. [Suspect]
     Active Substance: EPINEPHRINE
     Indication: HAEMODYNAMIC INSTABILITY
     Dosage: ARREST DOSE AFTER 1 ROUND OF CHEST COMPRESSIONS
     Route: 065

REACTIONS (1)
  - Drug resistance [Unknown]
